FAERS Safety Report 24935550 (Version 1)
Quarter: 2025Q1

REPORT INFORMATION
  Report Type: Spontaneous
  Country: IN (occurrence: IN)
  Receive Date: 20250206
  Receipt Date: 20250206
  Transmission Date: 20250409
  Serious: No
  Sender: ROCHE
  Company Number: IN-ROCHE-10000196394

PATIENT
  Age: 25 Year
  Sex: Female

DRUGS (1)
  1. OSELTAMIVIR [Suspect]
     Active Substance: OSELTAMIVIR
     Indication: Influenza like illness
     Route: 065

REACTIONS (2)
  - Maternal exposure during pregnancy [Unknown]
  - Hyperbilirubinaemia [Unknown]
